FAERS Safety Report 8962254 (Version 2)
Quarter: 2013Q1

REPORT INFORMATION
  Report Type: Spontaneous
  Country: US (occurrence: US)
  Receive Date: 20121212
  Receipt Date: 20130115
  Transmission Date: 20140127
  Serious: Yes (Hospitalization, Other)
  Sender: FDA-Public Use
  Company Number: US-PFIZER INC-2012309254

PATIENT
  Age: 38 Year
  Sex: Male
  Weight: 69 kg

DRUGS (3)
  1. LYRICA [Suspect]
     Indication: NEURALGIA
     Dosage: 100 MG, 2X/DAY
     Route: 048
     Dates: start: 2011, end: 201211
  2. PROPRANOLOL [Concomitant]
     Indication: CARDIAC DISORDER
     Dosage: UNK
  3. CRESTOR [Concomitant]
     Indication: BLOOD CHOLESTEROL ABNORMAL
     Dosage: UNK
     Dates: end: 201211

REACTIONS (12)
  - Anxiety [Unknown]
  - Panic attack [Not Recovered/Not Resolved]
  - Withdrawal syndrome [Unknown]
  - Abasia [Unknown]
  - Headache [Unknown]
  - Asthenia [Unknown]
  - Paraesthesia [Unknown]
  - Fatigue [Unknown]
  - Vomiting [Unknown]
  - Insomnia [Unknown]
  - Myalgia [Unknown]
  - Musculoskeletal pain [Unknown]
